FAERS Safety Report 24459960 (Version 1)
Quarter: 2024Q4

REPORT INFORMATION
  Report Type: Report from Study
  Country: TR (occurrence: TR)
  Receive Date: 20241018
  Receipt Date: 20241018
  Transmission Date: 20250115
  Serious: No
  Sender: ROCHE
  Company Number: TR-ROCHE-3543698

PATIENT

DRUGS (3)
  1. RITUXIMAB [Suspect]
     Active Substance: RITUXIMAB
     Indication: Interstitial lung disease
     Route: 065
  2. MYCOPHENOLATE MOFETIL [Suspect]
     Active Substance: MYCOPHENOLATE MOFETIL
     Indication: Interstitial lung disease
     Route: 065
  3. PIRFENIDONE [Suspect]
     Active Substance: PIRFENIDONE
     Indication: Interstitial lung disease
     Route: 065

REACTIONS (4)
  - Off label use [Unknown]
  - No adverse event [Unknown]
  - Off label use [Unknown]
  - Off label use [Unknown]
